FAERS Safety Report 9325980 (Version 1)
Quarter: 2013Q2

REPORT INFORMATION
  Report Type: Spontaneous
  Country: US (occurrence: None)
  Receive Date: 20130603
  Receipt Date: 20130603
  Transmission Date: 20140414
  Serious: Yes (Other)
  Sender: FDA-Public Use
  Company Number: None

PATIENT
  Age: 44 Year
  Sex: Female

DRUGS (1)
  1. CLOBETASOL [Suspect]
     Indication: PSORIASIS
     Dosage: PUMP OF FOAM, 2X DAY, FOAM TO SCALP.
     Dates: start: 20130425

REACTIONS (1)
  - Dyspnoea [None]
